FAERS Safety Report 4694964-9 (Version None)
Quarter: 2005Q2

REPORT INFORMATION
  Report Type: 
  Country: None (occurrence: None)
  Receive Date: 20050617
  Receipt Date: 20040614
  Transmission Date: 20051028
  Serious: Yes (Death, Hospitalization)
  Sender: FDA-Public Use
  Company Number: US-2004-026945

PATIENT
  Age: 60 Year
  Sex: Female
  Weight: 45 kg

DRUGS (6)
  1. CAMPATH [Suspect]
     Indication: ALLOGENIC BONE MARROW TRANSPLANTATION THERAPY
     Dosage: 20 MG, 1X/DAY X 5, INTRAVENOUS
     Route: 042
     Dates: start: 20030206
  2. FLUDARA [Suspect]
     Indication: ALLOGENIC BONE MARROW TRANSPLANTATION THERAPY
     Dosage: 48 MG, 1X/DAY X 5, INTRAVENOUS
     Route: 042
     Dates: start: 20030206, end: 20030211
  3. MELPHALAN(MELPHALAN) [Suspect]
     Indication: ALLOGENIC BONE MARROW TRANSPLANTATION THERAPY
     Dosage: 244 MG, 1 DOSE, INTRAVENOUS
     Route: 042
     Dates: start: 20030211, end: 20030211
  4. ANTIINFECTIVE PROPHYLAXIS [Concomitant]
  5. TACROLIMUS (TACROLIMUS) [Concomitant]
  6. NEUPOGEN [Concomitant]

REACTIONS (5)
  - ACUTE RESPIRATORY DISTRESS SYNDROME [None]
  - ACUTE SINUSITIS [None]
  - CYTOMEGALOVIRUS VIRAEMIA [None]
  - HAEMODYNAMIC INSTABILITY [None]
  - LUNG INFECTION PSEUDOMONAL [None]
